FAERS Safety Report 11469101 (Version 1)
Quarter: 2015Q3

REPORT INFORMATION
  Report Type: Spontaneous
  Country: GB (occurrence: GB)
  Receive Date: 20150908
  Receipt Date: 20150908
  Transmission Date: 20151125
  Serious: Yes (Other)
  Sender: FDA-Public Use
  Company Number: GB-ASTRAZENECA-2015SE85531

PATIENT
  Sex: Female

DRUGS (3)
  1. FORXIGA [Suspect]
     Active Substance: DAPAGLIFLOZIN
     Route: 048
     Dates: start: 2013
  2. ACE INHIBITORS [Interacting]
     Active Substance: UNSPECIFIED INGREDIENT
     Route: 065
  3. STATINS [Concomitant]
     Active Substance: UNSPECIFIED INGREDIENT

REACTIONS (7)
  - Malaise [Unknown]
  - Blood osmolarity abnormal [Unknown]
  - Adverse drug reaction [Unknown]
  - Drug interaction [Unknown]
  - Blood cholesterol increased [Unknown]
  - Hepatic enzyme abnormal [Unknown]
  - Renal impairment [Unknown]

NARRATIVE: CASE EVENT DATE: 201503
